FAERS Safety Report 8107081-2 (Version None)
Quarter: 2012Q1

REPORT INFORMATION
  Report Type: 
  Country: None (occurrence: None)
  Receive Date: 20120202
  Receipt Date: 20120125
  Transmission Date: 20120608
  Serious: Yes (Life-Threatening)
  Sender: FDA-Public Use
  Company Number: AR-UCBSA-050314

PATIENT
  Age: 31 Year
  Sex: Male
  Weight: 87 kg

DRUGS (2)
  1. CIMZIA [Suspect]
     Indication: PSORIATIC ARTHROPATHY
     Dosage: NO. OF DOSES RECEIVED:23
     Route: 058
     Dates: start: 20110330, end: 20111227
  2. DICLOFENAC [Concomitant]
     Indication: ARTHRITIS
     Route: 048
     Dates: start: 20101201

REACTIONS (1)
  - HIV INFECTION [None]
